FAERS Safety Report 4542004-4 (Version None)
Quarter: 2004Q4

REPORT INFORMATION
  Report Type: 
  Country: None (occurrence: None)
  Receive Date: 20041227
  Receipt Date: 20041217
  Transmission Date: 20050328
  Serious: Yes (Hospitalization)
  Sender: FDA-Public Use
  Company Number: MK200412-0333-1

PATIENT
  Age: 65 Year
  Sex: Female

DRUGS (5)
  1. PAMELOR [Suspect]
     Indication: DEPRESSION
     Dosage: 150 MG, DAILY, P.O.
     Route: 048
  2. ADALAT-SLOW RELEASE [Concomitant]
  3. ENALAPRIL [Concomitant]
  4. HYDROCHLOROTHIAZIDE [Concomitant]
  5. AMLODIPINE [Concomitant]

REACTIONS (1)
  - BUNDLE BRANCH BLOCK LEFT [None]
